FAERS Safety Report 14497763 (Version 2)
Quarter: 2018Q2

REPORT INFORMATION
  Report Type: Spontaneous
  Country: DE (occurrence: DE)
  Receive Date: 20180207
  Receipt Date: 20180417
  Transmission Date: 20180711
  Serious: Yes (Other)
  Sender: FDA-Public Use
  Company Number: DE-TEVA-793358GER

PATIENT
  Age: 66 Year
  Sex: Male
  Weight: 115 kg

DRUGS (10)
  1. VIGANTOLETTEN [Concomitant]
     Active Substance: CHOLECALCIFEROL
  2. NEPHRAL [Concomitant]
  3. ELIQUIS [Concomitant]
     Active Substance: APIXABAN
  4. KALINOR (POTASSIUM BICARBONATE\POTASSIUM CITRATE) [Concomitant]
     Active Substance: POTASSIUM BICARBONATE\POTASSIUM CITRATE
  5. PREDNISOLON [Concomitant]
     Active Substance: PREDNISOLONE
  6. PANTOPRAZOL [Concomitant]
     Active Substance: PANTOPRAZOLE SODIUM
  7. SIMVA [Concomitant]
     Active Substance: SIMVASTATIN
  8. TERBINAFINE. [Suspect]
     Active Substance: TERBINAFINE
     Dosage: .5 DOSAGE FORMS DAILY;
     Route: 065
     Dates: start: 20160804, end: 20170422
  9. RAMIPRIL. [Concomitant]
     Active Substance: RAMIPRIL
  10. METOHEXAL [Concomitant]
     Active Substance: METOPROLOL SUCCINATE

REACTIONS (7)
  - Myalgia [Recovered/Resolved]
  - Disease recurrence [Unknown]
  - Pain in extremity [Recovered/Resolved]
  - Temporal arteritis [Recovered/Resolved]
  - Amaurosis fugax [Recovered/Resolved]
  - Amaurosis fugax [Recovered/Resolved]
  - Limb discomfort [Recovered/Resolved]

NARRATIVE: CASE EVENT DATE: 20170401
